FAERS Safety Report 11714925 (Version 3)
Quarter: 2016Q1

REPORT INFORMATION
  Report Type: Spontaneous
  Country: US (occurrence: US)
  Receive Date: 20151109
  Receipt Date: 20160118
  Transmission Date: 20160525
  Serious: Yes (Hospitalization, Other)
  Sender: FDA-Public Use
  Company Number: US-GLAXOSMITHKLINE-US2015152975

PATIENT
  Age: 82 Year
  Sex: Female

DRUGS (2)
  1. NEBULIZED ALBUTEROL [Concomitant]
     Active Substance: ALBUTEROL
     Indication: PRODUCT USED FOR UNKNOWN INDICATION
     Dosage: UNK
  2. ADVAIR HFA [Suspect]
     Active Substance: FLUTICASONE PROPIONATE\SALMETEROL XINAFOATE
     Indication: ASTHMA
     Dosage: 2 PUFF(S), BID
     Route: 055

REACTIONS (14)
  - Hip arthroplasty [Recovered/Resolved with Sequelae]
  - Spinal operation [Recovered/Resolved with Sequelae]
  - Cough [Unknown]
  - Malaise [Unknown]
  - Rotator cuff repair [Recovered/Resolved with Sequelae]
  - Spinal fusion surgery [Unknown]
  - Drug ineffective [Recovered/Resolved]
  - Overdose [Unknown]
  - Product quality issue [Unknown]
  - Neoplasm malignant [Recovered/Resolved with Sequelae]
  - Device use error [Unknown]
  - Wheezing [Unknown]
  - Knee arthroplasty [Recovered/Resolved with Sequelae]
  - Dyspnoea [Recovered/Resolved]

NARRATIVE: CASE EVENT DATE: 201307
